FAERS Safety Report 12743264 (Version 1)
Quarter: 2016Q3

REPORT INFORMATION
  Report Type: Spontaneous
  Country: GB (occurrence: GB)
  Receive Date: 20160914
  Receipt Date: 20160914
  Transmission Date: 20161109
  Serious: Yes (Other)
  Sender: FDA-Public Use
  Company Number: GB-TEVA-691327ACC

PATIENT
  Age: 67 Year
  Sex: Male
  Weight: 76.2 kg

DRUGS (2)
  1. ACTAVIS UK MIRTAZAPINE [Suspect]
     Active Substance: MIRTAZAPINE
     Indication: DEPRESSED MOOD
     Route: 048
     Dates: start: 201608
  2. HYPURIN PORCINE [Concomitant]

REACTIONS (1)
  - Hypo HDL cholesterolaemia [Recovered/Resolved]

NARRATIVE: CASE EVENT DATE: 201608
